FAERS Safety Report 4402356-2 (Version None)
Quarter: 2004Q3

REPORT INFORMATION
  Report Type: 
  Country: None (occurrence: None)
  Receive Date: 20040715
  Receipt Date: 20040701
  Transmission Date: 20050211
  Serious: Yes (Death, Hospitalization)
  Sender: FDA-Public Use
  Company Number: 2004-BL-00092BL(1)

PATIENT
  Age: 40 Year
  Sex: Female

DRUGS (3)
  1. VIRAMUNE [Suspect]
     Indication: HIV INFECTION
     Dosage: 400 MG (200 MG, 1 IN 12 HR)
     Route: 048
     Dates: start: 20040405, end: 20040430
  2. STAVUDINE (STAVUDINE) (KA) [Concomitant]
  3. LAMIVUDINE (LAMIVUDINE) (TA) [Concomitant]

REACTIONS (5)
  - CARDIOGENIC SHOCK [None]
  - ENCEPHALOPATHY [None]
  - HEPATIC FAILURE [None]
  - TOXIC SKIN ERUPTION [None]
  - VOMITING [None]
